FAERS Safety Report 19174486 (Version 1)
Quarter: 2021Q2

REPORT INFORMATION
  Report Type: Spontaneous
  Country: US (occurrence: US)
  Receive Date: 20210423
  Receipt Date: 20210423
  Transmission Date: 20210717
  Serious: Yes (Congenital Anomaly, Other)
  Sender: FDA-Public Use
  Company Number: US-FOUNDATIONCONSUMERHC-2021-US-008484

PATIENT
  Sex: Male

DRUGS (1)
  1. PLAN B ONE?STEP [Suspect]
     Active Substance: LEVONORGESTREL
     Indication: MATERNAL EXPOSURE BEFORE PREGNANCY
     Dosage: 1.5MG
     Route: 050
     Dates: start: 2016, end: 2016

REACTIONS (4)
  - Maternal exposure before pregnancy [Recovered/Resolved]
  - Heart disease congenital [Not Recovered/Not Resolved]
  - Premature baby [Unknown]
  - Anaemia neonatal [Unknown]

NARRATIVE: CASE EVENT DATE: 2016
